FAERS Safety Report 21693609 (Version 2)
Quarter: 2022Q4

REPORT INFORMATION
  Report Type: Spontaneous
  Country: JP (occurrence: JP)
  Receive Date: 20221207
  Receipt Date: 20221213
  Transmission Date: 20230112
  Serious: Yes (Other)
  Sender: FDA-Public Use
  Company Number: JP-AJKK-JPG2020JP010641

PATIENT
  Age: 62 Year
  Sex: Female
  Weight: 63 kg

DRUGS (8)
  1. DIPRIVAN [Suspect]
     Active Substance: PROPOFOL
     Indication: Induction and maintenance of anaesthesia
     Dosage: 3 MCG/ML, UNKNOWN
     Route: 065
  2. DIPRIVAN [Suspect]
     Active Substance: PROPOFOL
     Dosage: 2.2-3.0 MCG/ML, UNKNOWN
     Route: 065
  3. AMLODIPINE [Suspect]
     Active Substance: AMLODIPINE BESYLATE
     Indication: Hypertension
     Dosage: 5 MG, QD (IN THE MORNING OF THE OPERATION DAY)
     Route: 065
  4. OXYGEN [Suspect]
     Active Substance: OXYGEN
     Indication: Induction and maintenance of anaesthesia
     Dosage: 6 L PER MIN
     Route: 065
  5. OXYGEN [Suspect]
     Active Substance: OXYGEN
     Dosage: 1 L PER MIN
     Route: 065
  6. REMIFENTANIL [Suspect]
     Active Substance: REMIFENTANIL
     Indication: Induction of anaesthesia
     Dosage: 0.4 MCG/ML/MIN
     Route: 065
  7. ROCURONIUM [Concomitant]
     Active Substance: ROCURONIUM BROMIDE
     Indication: Product used for unknown indication
     Dosage: 40 MG, UNKNOWN
     Route: 065
  8. ALOGLIPTIN [Concomitant]
     Active Substance: ALOGLIPTIN
     Indication: Diabetes mellitus
     Dosage: 25 MG, QD
     Route: 065

REACTIONS (1)
  - Cardiac arrest [Recovered/Resolved]
